FAERS Safety Report 10554193 (Version 4)
Quarter: 2015Q1

REPORT INFORMATION
  Report Type: Spontaneous
  Country: GB (occurrence: GB)
  Receive Date: 20141030
  Receipt Date: 20150323
  Transmission Date: 20150720
  Serious: Yes (Other)
  Sender: FDA-Public Use
  Company Number: GB-ASTRAZENECA-2014SE80909

PATIENT
  Age: 77 Year
  Sex: Male

DRUGS (2)
  1. OMEPRAZOLE. [Suspect]
     Active Substance: OMEPRAZOLE
     Indication: DYSPEPSIA
     Dosage: 10-20 MG QD
     Route: 048
     Dates: start: 20140122
  2. COCODAMOL [Concomitant]
     Active Substance: ACETAMINOPHEN\CODEINE PHOSPHATE
     Dates: start: 20140812

REACTIONS (4)
  - Arthralgia [Recovering/Resolving]
  - Pain [Unknown]
  - Musculoskeletal discomfort [Unknown]
  - Arthritis [Unknown]

NARRATIVE: CASE EVENT DATE: 201404
